FAERS Safety Report 23600228 (Version 2)
Quarter: 2024Q1

REPORT INFORMATION
  Report Type: Spontaneous
  Country: CA (occurrence: CA)
  Receive Date: 20240306
  Receipt Date: 20240313
  Transmission Date: 20240409
  Serious: Yes (Other)
  Sender: FDA-Public Use
  Company Number: CA-CELLTRION INC.-2024CA005417

PATIENT

DRUGS (5)
  1. INFLECTRA [Suspect]
     Active Substance: INFLIXIMAB-DYYB
     Indication: Crohn^s disease
     Dosage: 5 MG/KG, INDUCTION WK 0 ,2, 6 , MAINTENANCE EVERY 8 WKS
     Route: 042
     Dates: start: 20230921
  2. INFLECTRA [Suspect]
     Active Substance: INFLIXIMAB-DYYB
     Dosage: 5 MG/KG, INDUCTION WK 0 ,2, 6 THEN MAINTENANCE EVERY 8 WKS,(EVERY 8 WKS)
     Route: 042
     Dates: start: 20240103
  3. INFLECTRA [Suspect]
     Active Substance: INFLIXIMAB-DYYB
     Dosage: 315 MG,(5MG/KG), 7 WKS 5 DAYS, (INDUCTION WK 0 ,2, 6 THEN MAINTENANCE EVERY 8 WKS, EVERY 8 WK)
     Route: 042
     Dates: start: 20240226
  4. INFLECTRA [Suspect]
     Active Substance: INFLIXIMAB-DYYB
     Dosage: 10 MG/KG Q4 WEEK (NOT YET STARTED)
     Route: 042
  5. AZATHIOPRINE [Concomitant]
     Active Substance: AZATHIOPRINE
     Dosage: 1 DF
     Dates: start: 202309

REACTIONS (6)
  - Large intestinal stenosis [Unknown]
  - Diarrhoea [Recovered/Resolved]
  - Vomiting [Recovered/Resolved]
  - Drug level decreased [Unknown]
  - Inflammation [Not Recovered/Not Resolved]
  - Off label use [Unknown]
